FAERS Safety Report 12821538 (Version 1)
Quarter: 2016Q4

REPORT INFORMATION
  Report Type: Spontaneous
  Country: AU (occurrence: AU)
  Receive Date: 20161006
  Receipt Date: 20161006
  Transmission Date: 20170207
  Serious: Yes (Other)
  Sender: FDA-Public Use
  Company Number: AU-BAYER-2016-190512

PATIENT
  Age: 39 Year
  Sex: Female

DRUGS (4)
  1. DACARBAZINE. [Suspect]
     Active Substance: DACARBAZINE
     Indication: METASTATIC MALIGNANT MELANOMA
     Dosage: 850 MG/M2 A SINGLE DOSE
     Route: 042
  2. CELECOXIB. [Concomitant]
     Active Substance: CELECOXIB
  3. PREGABALIN. [Concomitant]
     Active Substance: PREGABALIN
  4. DENOSUMAB [Concomitant]
     Active Substance: DENOSUMAB
     Indication: BONE PAIN
     Dosage: 120 MG, Q1MON

REACTIONS (4)
  - Eastern Cooperative Oncology Group performance status worsened [None]
  - Anaemia [Recovered/Resolved]
  - Thrombocytopenia [Recovered/Resolved]
  - Leukoerythroblastic anaemia [Recovered/Resolved]
